FAERS Safety Report 11565768 (Version 3)
Quarter: 2016Q1

REPORT INFORMATION
  Report Type: Spontaneous
  Country: JP (occurrence: JP)
  Receive Date: 20150928
  Receipt Date: 20160216
  Transmission Date: 20160525
  Serious: Yes (Hospitalization, Other)
  Sender: FDA-Public Use
  Company Number: JP-GILEAD-2015-0172739

PATIENT
  Age: 54 Year
  Sex: Female

DRUGS (21)
  1. COPEGUS [Suspect]
     Active Substance: RIBAVIRIN
     Indication: CHRONIC HEPATITIS C
     Dosage: 600 MG, 200 MG AM, 400 MG PM
     Route: 048
     Dates: start: 20150703, end: 20150916
  2. NEXIUM [Concomitant]
     Active Substance: ESOMEPRAZOLE MAGNESIUM
     Dosage: 1 DF, QD
     Route: 065
     Dates: start: 20150918
  3. NAUZELIN [Concomitant]
     Active Substance: DOMPERIDONE
     Dosage: 1 DF, TID
     Route: 048
     Dates: start: 20150918
  4. SG                                 /00076501/ [Concomitant]
     Dosage: 1 G, BID
     Route: 065
     Dates: start: 20150918
  5. DEPAKENE [Concomitant]
     Active Substance: VALPROIC ACID
     Dosage: 400 MG, BID
     Route: 065
     Dates: start: 20151019
  6. NORVASC [Concomitant]
     Active Substance: AMLODIPINE BESYLATE
     Indication: HYPERTENSION
     Dosage: 1 DF, QD
     Route: 065
     Dates: end: 201508
  7. KAKKONTO                           /07985901/ [Concomitant]
     Indication: COUGH
     Dosage: 2.5 G, TID
     Route: 048
     Dates: start: 20150814, end: 20150916
  8. SOVALDI [Suspect]
     Active Substance: SOFOSBUVIR
     Indication: CHRONIC HEPATITIS C
     Dosage: 400 MG, QD
     Route: 048
     Dates: start: 20150703, end: 20150916
  9. EXCEGRAN [Concomitant]
     Active Substance: ZONISAMIDE
     Dosage: 1 DF, BID
     Route: 065
     Dates: start: 20151004
  10. DEPAKENE [Concomitant]
     Active Substance: VALPROIC ACID
     Dosage: 600 MG, QD
     Route: 065
  11. AZILVA [Concomitant]
     Active Substance: AZILSARTAN KAMEDOXOMIL
     Indication: HYPERTENSION
     Dosage: 1 DF, QD
     Route: 065
     Dates: end: 201508
  12. ALLERMIST [Concomitant]
     Active Substance: FLUTICASONE FUROATE
     Indication: COUGH
     Dosage: UNK, QD
     Route: 055
     Dates: start: 20150814, end: 20150912
  13. ADOAIR [Concomitant]
     Active Substance: FLUTICASONE PROPIONATE\SALMETEROL XINAFOATE
     Dosage: UNK, BID
     Route: 055
     Dates: start: 20150918
  14. MAGMITT [Concomitant]
     Active Substance: MAGNESIUM OXIDE
     Dosage: 2 DF, TID
     Route: 065
     Dates: start: 20150918
  15. COPEGUS [Suspect]
     Active Substance: RIBAVIRIN
     Dosage: UNK
     Route: 048
     Dates: start: 201509
  16. MEDICON                            /00048102/ [Concomitant]
     Active Substance: DEXTROMETHORPHAN HYDROBROMIDE
     Indication: COUGH
     Dosage: 30 MG, TID
     Route: 048
     Dates: start: 20150814, end: 201509
  17. CLARITHROMYCIN. [Concomitant]
     Active Substance: CLARITHROMYCIN
     Dosage: 1 DF, QD
     Route: 065
     Dates: start: 20150918
  18. TRAVELMIN                          /00141802/ [Concomitant]
     Dosage: 1 DF, QHS
     Route: 065
     Dates: start: 20151006
  19. EXCEGRAN [Concomitant]
     Active Substance: ZONISAMIDE
     Dosage: 200 MG, QD
     Route: 065
     Dates: start: 201512
  20. SOVALDI [Suspect]
     Active Substance: SOFOSBUVIR
     Dosage: UNK
     Route: 048
     Dates: start: 201509
  21. MUCOSOLVAN [Concomitant]
     Active Substance: AMBROXOL HYDROCHLORIDE
     Indication: COUGH
     Dosage: 15 MG, TID
     Route: 048
     Dates: start: 20150814, end: 20150916

REACTIONS (6)
  - Loss of consciousness [Unknown]
  - Depressed level of consciousness [Recovered/Resolved]
  - Respiratory distress [Recovered/Resolved]
  - Loss of consciousness [Recovered/Resolved]
  - Loss of consciousness [Recovering/Resolving]
  - Syncope [Recovered/Resolved]

NARRATIVE: CASE EVENT DATE: 20150829
